FAERS Safety Report 15490509 (Version 6)
Quarter: 2022Q4

REPORT INFORMATION
  Report Type: Spontaneous
  Country: GB (occurrence: GB)
  Receive Date: 20181011
  Receipt Date: 20221123
  Transmission Date: 20230113
  Serious: Yes (Death, Life-Threatening, Hospitalization, Disabling, Other)
  Sender: FDA-Public Use
  Company Number: PHHY2018GB122621

PATIENT
  Age: 76 Year
  Sex: Male
  Weight: 69 kg

DRUGS (82)
  1. TACROLIMUS [Interacting]
     Active Substance: TACROLIMUS
     Indication: Prophylaxis against transplant rejection
     Dosage: 5 MILLIGRAM PER MILLILITRE
     Route: 065
  2. TACROLIMUS [Interacting]
     Active Substance: TACROLIMUS
     Indication: Renal transplant
     Dosage: UNK
     Route: 065
  3. TACROLIMUS [Interacting]
     Active Substance: TACROLIMUS
     Dosage: 12 MG, QD
     Route: 065
  4. TACROLIMUS [Interacting]
     Active Substance: TACROLIMUS
     Dosage: 27 MG, EVERY 5 DAYS
     Route: 065
  5. TACROLIMUS [Interacting]
     Active Substance: TACROLIMUS
     Dosage: 4 MG, QD (CAPSULE)
     Route: 065
  6. TACROLIMUS [Interacting]
     Active Substance: TACROLIMUS
     Dosage: 1.5 MG (0.5 DAY, CAPSULE)
     Route: 048
     Dates: start: 20100127, end: 20180131
  7. TACROLIMUS [Interacting]
     Active Substance: TACROLIMUS
     Dosage: 1.5 MG (0.5 DAY)
     Route: 048
     Dates: start: 20180127, end: 20180131
  8. TACROLIMUS [Interacting]
     Active Substance: TACROLIMUS
     Dosage: 15 MG (0.5 DAY, CAPSULE)
     Route: 048
     Dates: start: 20180127
  9. TACROLIMUS [Interacting]
     Active Substance: TACROLIMUS
     Dosage: 3 MG, QD
     Route: 048
     Dates: start: 20180127
  10. TACROLIMUS [Interacting]
     Active Substance: TACROLIMUS
     Dosage: 1.5 MG, QD (CAPSULE)
     Route: 065
     Dates: start: 20180127
  11. TACROLIMUS [Interacting]
     Active Substance: TACROLIMUS
     Dosage: 2 MG (0.5 DAY, CAPSULE)
     Route: 048
     Dates: start: 20180128
  12. TACROLIMUS [Interacting]
     Active Substance: TACROLIMUS
     Dosage: 1.5 MG (0.5 DAY, CAPSULE)
     Route: 065
  13. TACROLIMUS [Interacting]
     Active Substance: TACROLIMUS
     Dosage: 4 MG, QD (CAPSULE)
     Route: 048
     Dates: start: 20180128
  14. CLARITHROMYCIN [Interacting]
     Active Substance: CLARITHROMYCIN
     Indication: Pneumonia
     Dosage: 1000 MG, QD
     Route: 042
     Dates: start: 20180127, end: 20180131
  15. CLARITHROMYCIN [Interacting]
     Active Substance: CLARITHROMYCIN
     Indication: Lower respiratory tract infection
     Dosage: 9000 MG, QD
     Route: 065
  16. CLARITHROMYCIN [Interacting]
     Active Substance: CLARITHROMYCIN
     Indication: Mediastinitis
     Dosage: UNK
     Route: 065
  17. CLARITHROMYCIN [Interacting]
     Active Substance: CLARITHROMYCIN
     Dosage: 500 MG (0.5 DAY)
     Route: 042
  18. CLARITHROMYCIN [Interacting]
     Active Substance: CLARITHROMYCIN
     Dosage: 500 MG (0.5 DAY)
     Route: 042
     Dates: start: 20180127, end: 20180131
  19. CLARITHROMYCIN [Interacting]
     Active Substance: CLARITHROMYCIN
     Dosage: 500 MG, BID
     Route: 042
  20. OMEPRAZOLE [Suspect]
     Active Substance: OMEPRAZOLE
     Indication: Duodenal ulcer
     Dosage: 20 MG, MONTHLY (QMO)
     Route: 048
  21. OMEPRAZOLE [Suspect]
     Active Substance: OMEPRAZOLE
     Dosage: 20 MG, ONCE DAILY IN MORNING
     Route: 048
  22. NITROGLYCERIN [Suspect]
     Active Substance: NITROGLYCERIN
     Indication: Product used for unknown indication
     Dosage: UNK
     Route: 065
  23. NITROGLYCERIN [Suspect]
     Active Substance: NITROGLYCERIN
     Indication: Product used for unknown indication
     Dosage: UNK
     Route: 065
  24. CEFUROXIME [Suspect]
     Active Substance: CEFUROXIME
     Indication: Product used for unknown indication
     Dosage: UNK
     Route: 065
     Dates: start: 20180131
  25. BISOPROLOL [Suspect]
     Active Substance: BISOPROLOL
     Indication: Product used for unknown indication
     Dosage: UNK
     Route: 065
  26. DOXYCYCLINE [Suspect]
     Active Substance: DOXYCYCLINE
     Indication: Product used for unknown indication
     Dosage: 1 DOSAGE FORM
     Route: 065
  27. DOXYCYCLINE [Suspect]
     Active Substance: DOXYCYCLINE
     Indication: Product used for unknown indication
     Dosage: UNK
     Route: 065
  28. DOXYCYCLINE [Suspect]
     Active Substance: DOXYCYCLINE
     Dosage: UNK UNK, UNKNOWN FREQ.
     Route: 065
  29. DEXTROSE [Suspect]
     Active Substance: DEXTROSE
     Indication: Product used for unknown indication
     Dosage: UNK
     Route: 065
  30. DEXTROSE [Suspect]
     Active Substance: DEXTROSE
     Indication: Product used for unknown indication
     Dosage: UNK UNK, UNKNOWN FREQ.
     Route: 065
  31. HYDROCORTISONE [Suspect]
     Active Substance: HYDROCORTISONE
     Indication: Product used for unknown indication
     Dosage: 150 MG (0.33 DAY)
     Route: 042
     Dates: start: 20180201
  32. HYDROCORTISONE [Suspect]
     Active Substance: HYDROCORTISONE
     Indication: Product used for unknown indication
     Dosage: 50 MG (0.33 DAY)
     Route: 042
     Dates: start: 20180201
  33. HYDROCORTISONE [Suspect]
     Active Substance: HYDROCORTISONE
     Dosage: UNK
     Route: 065
  34. HYDROCORTISONE [Suspect]
     Active Substance: HYDROCORTISONE
     Dosage: 50 MG (0.33 DAY)
     Route: 042
  35. HYDROCORTISONE [Suspect]
     Active Substance: HYDROCORTISONE
     Dosage: 150 MG, QD
     Route: 042
     Dates: start: 20180201
  36. HYDROCORTISONE [Suspect]
     Active Substance: HYDROCORTISONE
     Dosage: 50 MG
     Route: 042
  37. HYDROCORTISONE [Suspect]
     Active Substance: HYDROCORTISONE
     Dosage: UNK UNK, UNKNOWN FREQ.
     Route: 065
  38. SENNOSIDES A AND B [Suspect]
     Active Substance: SENNOSIDES A AND B
     Indication: Product used for unknown indication
     Dosage: UNK
     Route: 065
  39. SENNOSIDES A AND B [Suspect]
     Active Substance: SENNOSIDES A AND B
     Dosage: UNK UNK, UNKNOWN FREQ.
     Route: 065
  40. ALFACALCIDOL [Suspect]
     Active Substance: ALFACALCIDOL
     Indication: Product used for unknown indication
     Dosage: 500 NG, QD
     Route: 048
  41. ALFACALCIDOL [Suspect]
     Active Substance: ALFACALCIDOL
     Dosage: 500 NG
     Route: 048
  42. GLICLAZIDE [Concomitant]
     Active Substance: GLICLAZIDE
     Indication: Product used for unknown indication
     Dosage: 40 MG, QD
     Route: 048
  43. GLICLAZIDE [Concomitant]
     Active Substance: GLICLAZIDE
     Dosage: 40 MG, ONCE DAILY MORNING
     Route: 048
  44. GLICLAZIDE [Concomitant]
     Active Substance: GLICLAZIDE
     Dosage: 40 MG, QMO
     Route: 048
  45. PREDNISOLONE [Concomitant]
     Active Substance: PREDNISOLONE
     Indication: Product used for unknown indication
     Dosage: 5 MG, ONCE DAILY (AM)
     Route: 048
  46. PREDNISOLONE [Concomitant]
     Active Substance: PREDNISOLONE
     Dosage: 5 MG, ONCE DAILY (AM)
     Route: 048
  47. PREDNISOLONE [Concomitant]
     Active Substance: PREDNISOLONE
     Dosage: 10 MG (INCREASE PREDNISOLONE TO 10 MG FOR 5 DAYS)
     Route: 065
     Dates: start: 20180127
  48. PREDNISOLONE [Concomitant]
     Active Substance: PREDNISOLONE
     Dosage: 5 MG, QMO
     Route: 048
     Dates: start: 20180127
  49. PREDNISOLONE [Concomitant]
     Active Substance: PREDNISOLONE
     Dosage: 10 MG, UNKNOWN FREQ.
     Route: 065
  50. PREDNISOLONE [Concomitant]
     Active Substance: PREDNISOLONE
     Dosage: INCREASE PREDNISOLONE TO 10 MG FOR 5 DAYS
     Route: 065
     Dates: start: 20180127
  51. FUROSEMIDE [Concomitant]
     Active Substance: FUROSEMIDE
     Indication: Product used for unknown indication
     Dosage: 40 MG, ONCE DAILY; 12 PM
     Route: 048
  52. FUROSEMIDE [Concomitant]
     Active Substance: FUROSEMIDE
     Dosage: 80 MG, OM
     Route: 048
     Dates: start: 20180130
  53. FUROSEMIDE [Concomitant]
     Active Substance: FUROSEMIDE
     Dosage: 120 MG (80 MG MORNING 40 MG 12 PM), ONCE DAILY
     Route: 048
  54. FUROSEMIDE [Concomitant]
     Active Substance: FUROSEMIDE
     Dosage: 80 MG, QD
     Route: 048
  55. BETAHISTINE [Concomitant]
     Active Substance: BETAHISTINE
     Indication: Product used for unknown indication
     Dosage: 8 MG, ONCE DAILY MORNING
     Route: 048
  56. BETAHISTINE [Concomitant]
     Active Substance: BETAHISTINE
     Dosage: 8 MG, QMO
     Route: 048
  57. ALLOPURINOL SODIUM [Concomitant]
     Active Substance: ALLOPURINOL SODIUM
     Indication: Product used for unknown indication
     Dosage: 100 MG, QD
     Route: 048
  58. SENNA [Concomitant]
     Active Substance: SENNA LEAF\SENNOSIDES\SENNOSIDES A AND B
     Indication: Product used for unknown indication
     Dosage: 15 MG, QD
     Route: 048
  59. SENNA [Concomitant]
     Active Substance: SENNA LEAF\SENNOSIDES\SENNOSIDES A AND B
     Dosage: UNK
     Route: 065
  60. SENNA [Concomitant]
     Active Substance: SENNA LEAF\SENNOSIDES\SENNOSIDES A AND B
     Dosage: 15 MG, UNKNOWN FREQ.
     Route: 048
  61. SENNA [Concomitant]
     Active Substance: SENNA LEAF\SENNOSIDES\SENNOSIDES A AND B
     Dosage: 15 MG, ONCE DAILY (PM)
     Route: 048
  62. SENNA [Concomitant]
     Active Substance: SENNA LEAF\SENNOSIDES\SENNOSIDES A AND B
     Dosage: UNK UNK, UNKNOWN FREQ.
     Route: 065
  63. EPLERENONE [Concomitant]
     Active Substance: EPLERENONE
     Indication: Product used for unknown indication
     Dosage: 25 MG, ONCE DAILY MORNING
     Route: 048
     Dates: start: 20180130
  64. EPLERENONE [Concomitant]
     Active Substance: EPLERENONE
     Dosage: 25 MG, QMO
     Route: 048
     Dates: start: 20180130
  65. EPLERENONE [Concomitant]
     Active Substance: EPLERENONE
     Dosage: 25 MG, QD
     Route: 065
     Dates: start: 20180130
  66. EPLERENONE [Concomitant]
     Active Substance: EPLERENONE
     Dosage: 25 MG, ONCE DAILY MORNING
     Route: 048
     Dates: end: 20180130
  67. EPLERENONE [Concomitant]
     Active Substance: EPLERENONE
     Dosage: 25 MG
     Route: 065
     Dates: end: 20180130
  68. CHOLECALCIFEROL [Concomitant]
     Active Substance: CHOLECALCIFEROL
     Indication: Product used for unknown indication
     Dosage: 20 NG, ONCE DAILY MORNING
     Route: 048
  69. CHOLECALCIFEROL [Concomitant]
     Active Substance: CHOLECALCIFEROL
     Dosage: 20 NG, ONCE DAILY MORNING
     Route: 048
  70. NITROGLYCERIN [Concomitant]
     Active Substance: NITROGLYCERIN
     Indication: Product used for unknown indication
     Dosage: UNK (SPRAY)
     Route: 065
  71. NITROGLYCERIN [Concomitant]
     Active Substance: NITROGLYCERIN
     Dosage: UNK UNK, UNKNOWN FREQ.
     Route: 065
  72. ALBUTEROL [Concomitant]
     Active Substance: ALBUTEROL
     Indication: Product used for unknown indication
     Dosage: UNK
     Route: 065
  73. ALBUTEROL [Concomitant]
     Active Substance: ALBUTEROL
     Indication: Product used for unknown indication
     Dosage: UNK UNK, UNKNOWN FREQ.
     Route: 065
  74. DEXTROSE [Concomitant]
     Active Substance: DEXTROSE
     Indication: Product used for unknown indication
     Dosage: UNK UNK, UNKNOWN FREQ.
     Route: 065
     Dates: start: 20180130
  75. DEXTROSE [Concomitant]
     Active Substance: DEXTROSE
     Indication: Product used for unknown indication
  76. GLUCOGEL [Concomitant]
     Indication: Product used for unknown indication
     Dosage: UNK UNK, UNKNOWN FREQ.
     Route: 065
     Dates: start: 20180130
  77. GLUCOGEL [Concomitant]
     Indication: Product used for unknown indication
     Dosage: UNK
     Route: 065
  78. GLUCOGEL [Concomitant]
     Dosage: UNK UNK, UNKNOWN FREQ.
     Route: 065
  79. CALCIUM CARBONATE [Concomitant]
     Active Substance: CALCIUM CARBONATE
     Indication: Product used for unknown indication
     Dosage: UNK
     Route: 065
  80. CALCIUM CARBONATE [Concomitant]
     Active Substance: CALCIUM CARBONATE
     Indication: Product used for unknown indication
     Dosage: UNK UNK, UNKNOWN FREQ.
     Route: 048
  81. GLUCAGON [Concomitant]
     Active Substance: GLUCAGON
     Indication: Product used for unknown indication
     Dosage: UNK UNK, UNKNOWN FREQ.
     Route: 030
     Dates: start: 20180130
  82. GLUCAGON [Concomitant]
     Active Substance: GLUCAGON
     Indication: Product used for unknown indication

REACTIONS (32)
  - Immunosuppressant drug level increased [Fatal]
  - Rales [Fatal]
  - Multimorbidity [Fatal]
  - Renal impairment [Fatal]
  - Soft tissue mass [Fatal]
  - Dysphagia [Fatal]
  - Lung consolidation [Fatal]
  - Pneumonia [Fatal]
  - Inflammatory marker increased [Fatal]
  - Oesophageal perforation [Fatal]
  - Toxicity to various agents [Fatal]
  - Transplant failure [Fatal]
  - Cardiac failure congestive [Fatal]
  - Acute kidney injury [Fatal]
  - Cardiomegaly [Fatal]
  - Sepsis [Fatal]
  - Condition aggravated [Fatal]
  - Pyrexia [Fatal]
  - Malaise [Fatal]
  - Dyspnoea [Fatal]
  - Pleural effusion [Fatal]
  - Ascites [Fatal]
  - Rash [Fatal]
  - Cough [Fatal]
  - Myocardial ischaemia [Fatal]
  - Superinfection [Fatal]
  - Hypoglycaemia [Fatal]
  - Productive cough [Fatal]
  - Oesophageal carcinoma [Fatal]
  - Lower respiratory tract infection [Unknown]
  - Haemoptysis [Unknown]
  - Labelled drug-drug interaction medication error [Unknown]

NARRATIVE: CASE EVENT DATE: 20180130
